FAERS Safety Report 7804669-0 (Version None)
Quarter: 2011Q4

REPORT INFORMATION
  Report Type: 
  Country: None (occurrence: None)
  Receive Date: 20111010
  Receipt Date: 20111004
  Transmission Date: 20120403
  Serious: Yes (Other)
  Sender: FDA-Public Use
  Company Number: US-AMGEN-USASP2011051370

PATIENT
  Age: 40 Year
  Sex: Female

DRUGS (1)
  1. ENBREL [Suspect]
     Indication: RHEUMATOID ARTHRITIS
     Dosage: 25 MG, 2 TIMES/WK
     Dates: start: 20110801

REACTIONS (6)
  - ARTHRALGIA [None]
  - JOINT SWELLING [None]
  - ABDOMINAL PAIN [None]
  - PERNICIOUS ANAEMIA [None]
  - FATIGUE [None]
  - NAUSEA [None]
